FAERS Safety Report 7708042-5 (Version None)
Quarter: 2011Q3

REPORT INFORMATION
  Report Type: 
  Country: None (occurrence: None)
  Receive Date: 20110825
  Receipt Date: 20110819
  Transmission Date: 20111222
  Serious: Yes (Other)
  Sender: FDA-Public Use
  Company Number: DE-BRISTOL-MYERS SQUIBB COMPANY-15984925

PATIENT
  Sex: Male

DRUGS (2)
  1. AMPHOTERICIN B [Suspect]
     Indication: CRYPTOCOCCOSIS
  2. AMBISOME [Suspect]

REACTIONS (5)
  - VOMITING [None]
  - OVERDOSE [None]
  - HAEMOLYSIS [None]
  - RENAL FAILURE ACUTE [None]
  - ANAEMIA [None]
